FAERS Safety Report 21339469 (Version 1)
Quarter: 2022Q3

REPORT INFORMATION
  Report Type: Spontaneous
  Country: US (occurrence: US)
  Receive Date: 20220915
  Receipt Date: 20220915
  Transmission Date: 20221027
  Serious: No
  Sender: FDA-Public Use
  Company Number: US-SANOFI-01267994

PATIENT
  Age: 81 Year
  Sex: Male

DRUGS (2)
  1. SARCLISA [Suspect]
     Active Substance: ISATUXIMAB-IRFC
     Indication: Plasma cell myeloma
     Dosage: UNK UNK, QW
     Dates: start: 20220901
  2. VENETOCLAX [Suspect]
     Active Substance: VENETOCLAX
     Indication: Plasma cell myeloma
     Dosage: UNK
     Dates: start: 2022

REACTIONS (1)
  - Contraindicated product administered [Unknown]

NARRATIVE: CASE EVENT DATE: 20220901
